FAERS Safety Report 9457188 (Version 2)
Quarter: 2014Q3

REPORT INFORMATION
  Report Type: Spontaneous
  Country: JP (occurrence: JP)
  Receive Date: 20130814
  Receipt Date: 20140829
  Transmission Date: 20150326
  Serious: No
  Sender: FDA-Public Use
  Company Number: JP-009507513-1308JPN004635

PATIENT
  Age: 77 Year
  Sex: Female

DRUGS (8)
  1. LEVOTHYROXINE SODIUM. [Concomitant]
     Active Substance: LEVOTHYROXINE SODIUM
     Dosage: UNK
     Route: 048
     Dates: start: 20090827
  2. METFORMIN HYDROCHLORIDE. [Concomitant]
     Active Substance: METFORMIN HYDROCHLORIDE
     Indication: TYPE 2 DIABETES MELLITUS
     Dosage: 250 MG, 3 TIMES A DAY
     Dates: start: 20120925
  3. ACARBOSE. [Concomitant]
     Active Substance: ACARBOSE
     Dosage: 50 MG, 6 TIMES A DAY
     Dates: start: 20100227
  4. LEVOTHYROXINE SODIUM. [Concomitant]
     Active Substance: LEVOTHYROXINE SODIUM
     Indication: HYPOTHYROIDISM
     Dosage: ONE TABLET PER DAY
     Route: 048
     Dates: start: 20080422, end: 20090826
  5. SERMION [Concomitant]
     Active Substance: NICERGOLINE
     Dosage: UNK
     Dates: start: 19970930
  6. ACARBOSE. [Concomitant]
     Active Substance: ACARBOSE
     Indication: TYPE 2 DIABETES MELLITUS
     Dosage: 50 MG, 3 TIMES A DAY
     Dates: start: 20090422, end: 20100226
  7. GLACTIV [Suspect]
     Active Substance: SITAGLIPTIN
     Dosage: 100 MG, ONCE A DAY
     Route: 048
     Dates: start: 20121031, end: 20130803
  8. GLACTIV [Suspect]
     Active Substance: SITAGLIPTIN
     Indication: TYPE 2 DIABETES MELLITUS
     Dosage: 50 MG, ONCE A DAY
     Route: 048
     Dates: start: 20120925, end: 20121030

REACTIONS (1)
  - Altered state of consciousness [Recovered/Resolved]

NARRATIVE: CASE EVENT DATE: 20130727
